FAERS Safety Report 25086242 (Version 3)
Quarter: 2025Q2

REPORT INFORMATION
  Report Type: Spontaneous
  Country: CA (occurrence: CA)
  Receive Date: 20250317
  Receipt Date: 20250512
  Transmission Date: 20250716
  Serious: Yes (Other)
  Sender: PFIZER
  Company Number: CA-PFIZER INC-PV202400138134

PATIENT
  Age: 26 Year
  Sex: Female

DRUGS (15)
  1. ZIRABEV [Suspect]
     Active Substance: BEVACIZUMAB-BVZR
     Indication: Glioblastoma
     Route: 042
     Dates: start: 20241022
  2. ZIRABEV [Suspect]
     Active Substance: BEVACIZUMAB-BVZR
     Route: 042
     Dates: start: 20241104
  3. ZIRABEV [Suspect]
     Active Substance: BEVACIZUMAB-BVZR
     Route: 042
     Dates: start: 20241119
  4. ZIRABEV [Suspect]
     Active Substance: BEVACIZUMAB-BVZR
     Route: 042
     Dates: start: 20241119
  5. ZIRABEV [Suspect]
     Active Substance: BEVACIZUMAB-BVZR
     Route: 042
     Dates: start: 20241203
  6. ZIRABEV [Suspect]
     Active Substance: BEVACIZUMAB-BVZR
     Route: 042
     Dates: start: 20241217
  7. ZIRABEV [Suspect]
     Active Substance: BEVACIZUMAB-BVZR
     Route: 042
     Dates: start: 20250114
  8. ZIRABEV [Suspect]
     Active Substance: BEVACIZUMAB-BVZR
     Route: 042
     Dates: start: 20250128
  9. ZIRABEV [Suspect]
     Active Substance: BEVACIZUMAB-BVZR
     Route: 042
     Dates: start: 20250128
  10. ZIRABEV [Suspect]
     Active Substance: BEVACIZUMAB-BVZR
     Route: 042
     Dates: start: 2025
  11. ZIRABEV [Suspect]
     Active Substance: BEVACIZUMAB-BVZR
     Route: 042
     Dates: start: 20250225
  12. ZIRABEV [Suspect]
     Active Substance: BEVACIZUMAB-BVZR
     Route: 042
     Dates: start: 20250225
  13. ZIRABEV [Suspect]
     Active Substance: BEVACIZUMAB-BVZR
     Route: 042
     Dates: start: 20250311
  14. ZIRABEV [Suspect]
     Active Substance: BEVACIZUMAB-BVZR
     Route: 042
     Dates: start: 20250324
  15. DEXAMETHASONE [Concomitant]
     Active Substance: DEXAMETHASONE

REACTIONS (10)
  - Rectal haemorrhage [Recovered/Resolved]
  - Thrombosis [Recovered/Resolved]
  - Urinary tract infection [Unknown]
  - Blood pressure diastolic increased [Not Recovered/Not Resolved]
  - Hypersomnia [Unknown]
  - Fatigue [Unknown]
  - Decreased appetite [Unknown]
  - Weight decreased [Unknown]
  - Confusional state [Unknown]
  - Communication disorder [Unknown]

NARRATIVE: CASE EVENT DATE: 20240101
